FAERS Safety Report 6420080-1 (Version None)
Quarter: 2009Q4

REPORT INFORMATION
  Report Type: 
  Country: None (occurrence: None)
  Receive Date: 20091027
  Receipt Date: 20091013
  Transmission Date: 20100525
  Serious: Yes (Hospitalization)
  Sender: FDA-Public Use
  Company Number: 8053464

PATIENT
  Age: 14 Year
  Sex: Female
  Weight: 36.2 kg

DRUGS (8)
  1. PREDNISOLONE [Suspect]
     Indication: NEPHROTIC SYNDROME
     Dosage: 30 MG PO
     Route: 048
     Dates: start: 20060101, end: 20070101
  2. PREDNISOLONE [Suspect]
     Indication: NEPHROTIC SYNDROME
     Dosage: PO
     Route: 048
     Dates: start: 20070101, end: 20070101
  3. PREDNISOLONE [Suspect]
     Indication: NEPHROTIC SYNDROME
     Dosage: 10 MG 2 D PO
     Route: 048
     Dates: start: 20080601, end: 20080701
  4. PREDNISOLONE [Suspect]
     Indication: NEPHROTIC SYNDROME
     Dosage: 0.7 MG KG D PO
     Route: 048
     Dates: start: 20080701
  5. CYCLOSPORINE [Suspect]
     Indication: NEPHROTIC SYNDROME
     Dosage: 75 MG 2 D
     Dates: start: 20060101, end: 20070101
  6. CYCLOSPORINE [Suspect]
     Indication: NEPHROTIC SYNDROME
     Dosage: 25 MG 2 D
     Dates: start: 20070101, end: 20080601
  7. CYCLOSPORINE [Suspect]
     Indication: NEPHROTIC SYNDROME
     Dosage: 50 MG 2 D
     Dates: start: 20080601, end: 20080701
  8. WARFARIN SODIUM [Concomitant]

REACTIONS (8)
  - DISEASE RECURRENCE [None]
  - FOCAL SEGMENTAL GLOMERULOSCLEROSIS [None]
  - GLOMERULONEPHRITIS MEMBRANOUS [None]
  - NEPHRITIS [None]
  - NEPHROTIC SYNDROME [None]
  - RENAL EMBOLISM [None]
  - RENAL VEIN THROMBOSIS [None]
  - SYSTEMIC LUPUS ERYTHEMATOSUS [None]
